FAERS Safety Report 23627199 (Version 1)
Quarter: 2024Q1

REPORT INFORMATION
  Report Type: Report from Study
  Country: US (occurrence: US)
  Receive Date: 20240313
  Receipt Date: 20240313
  Transmission Date: 20240409
  Serious: No
  Sender: FDA-Public Use
  Company Number: US-SPRINGWORKS THERAPEUTICS-SW-001200

PATIENT
  Age: 40 Year
  Sex: Female

DRUGS (2)
  1. NIROGACESTAT [Suspect]
     Active Substance: NIROGACESTAT
     Indication: Product used for unknown indication
     Dosage: 150 MILLIGRAM, BID
     Route: 048
  2. NIROGACESTAT [Suspect]
     Active Substance: NIROGACESTAT
     Dosage: 2 TABLETS, BID

REACTIONS (6)
  - Nasal congestion [Unknown]
  - Pulmonary congestion [Unknown]
  - Heart rate increased [Unknown]
  - Photopsia [Unknown]
  - Dyspnoea [Unknown]
  - Diarrhoea [Unknown]

NARRATIVE: CASE EVENT DATE: 20240102
